FAERS Safety Report 5310582-3 (Version None)
Quarter: 2007Q1

REPORT INFORMATION
  Report Type: 
  Country: None (occurrence: None)
  Receive Date: 20070201
  Receipt Date: 20061030
  Transmission Date: 20070707
  Serious: No
  Sender: FDA-Public Use
  Company Number: 258118

PATIENT
  Age: 82 Year
  Sex: Female
  Weight: 61.2 kg

DRUGS (3)
  1. LEVEMIR [Suspect]
     Indication: INSULIN-REQUIRING TYPE II DIABETES MELLITUS
     Dosage: 9-10 IU, QD AT H.S.,SUBCUTANEOUS
     Route: 058
     Dates: start: 20060902
  2. PRANDIN [Concomitant]
  3. NOVOFINE(R) 31 (NEEDLE) [Concomitant]

REACTIONS (1)
  - INJECTION SITE IRRITATION [None]
